FAERS Safety Report 10590839 (Version 1)
Quarter: 2014Q4

REPORT INFORMATION
  Report Type: Report from Study
  Country: US (occurrence: US)
  Receive Date: 20141118
  Receipt Date: 20141118
  Transmission Date: 20150529
  Serious: Yes (Hospitalization)
  Sender: FDA-Public Use
  Company Number: US-BAYER-2014-170475

PATIENT
  Age: 47 Year
  Sex: Female

DRUGS (4)
  1. ASPIRIN. [Suspect]
     Active Substance: ASPIRIN
     Indication: ANTIPLATELET THERAPY
  2. HEPARIN [Suspect]
     Active Substance: HEPARIN SODIUM
     Dosage: BOLUS
     Route: 042
  3. TISSUE PLASMINOGEN ACTIVATOR, RECOMBINANT [Suspect]
     Active Substance: ALTEPLASE
     Indication: ISCHAEMIC STROKE
     Route: 042
  4. TISSUE PLASMINOGEN ACTIVATOR, RECOMBINANT [Suspect]
     Active Substance: ALTEPLASE
     Indication: THROMBOLYSIS

REACTIONS (2)
  - Cerebral haemorrhage [None]
  - Aphasia [Recovered/Resolved]
